FAERS Safety Report 19046254 (Version 1)
Quarter: 2021Q1

REPORT INFORMATION
  Report Type: Spontaneous
  Country: CN (occurrence: CN)
  Receive Date: 20210323
  Receipt Date: 20210323
  Transmission Date: 20210420
  Serious: Yes (Hospitalization)
  Sender: FDA-Public Use
  Company Number: CN-INNOCOLL PHARMACEUTICALS LIMITED-2021INN00001

PATIENT
  Age: 45 Year
  Sex: Female

DRUGS (4)
  1. BUPIVACAINE. [Suspect]
     Active Substance: BUPIVACAINE
     Indication: SPINAL ANAESTHESIA
     Dosage: 3 ML
     Route: 037
  2. ROPIVACAINE. [Concomitant]
     Active Substance: ROPIVACAINE HYDROCHLORIDE
     Dosage: 5 % BOLUS
     Route: 008
  3. ROPIVACAINE. [Concomitant]
     Active Substance: ROPIVACAINE HYDROCHLORIDE
     Dosage: 0.2 % ON A BASAL RATE OF 2 ML/HOUR
     Route: 008
  4. FENTANYL. [Concomitant]
     Active Substance: FENTANYL
     Dosage: 4 MG/L AT A BASAL RATE OF 2 ML/HR
     Route: 008

REACTIONS (3)
  - Neurotoxicity [Recovered/Resolved]
  - Vocal cord paralysis [Recovering/Resolving]
  - Cauda equina syndrome [Recovered/Resolved]
